FAERS Safety Report 5247270-8 (Version None)
Quarter: 2007Q1

REPORT INFORMATION
  Report Type: 
  Country: None (occurrence: None)
  Receive Date: 20070227
  Receipt Date: 20070221
  Transmission Date: 20070707
  Serious: Yes (Death)
  Sender: FDA-Public Use
  Company Number: PHBS2006NO12419

PATIENT
  Sex: Female

DRUGS (1)
  1. TRANSDERM-NITRO [Suspect]
     Dosage: 3 PATSCHES/PAY
     Route: 062

REACTIONS (3)
  - ACCIDENTAL OVERDOSE [None]
  - DEATH [None]
  - MEDICATION ERROR [None]
